FAERS Safety Report 16399921 (Version 1)
Quarter: 2019Q2

REPORT INFORMATION
  Report Type: Spontaneous
  Country: US (occurrence: US)
  Receive Date: 20190606
  Receipt Date: 20190606
  Transmission Date: 20190711
  Serious: Yes (Hospitalization)
  Sender: FDA-Public Use
  Company Number: US-MYLANLABS-2019M1053447

PATIENT
  Age: 78 Year
  Sex: Male

DRUGS (1)
  1. CIPROFLOXACIN. [Suspect]
     Active Substance: CIPROFLOXACIN
     Indication: ESCHERICHIA BACTERAEMIA
     Dosage: FOR 10 DAYS
     Route: 065

REACTIONS (3)
  - Renal tubular necrosis [Recovering/Resolving]
  - Crystal nephropathy [Recovering/Resolving]
  - Tubulointerstitial nephritis [Recovering/Resolving]
